FAERS Safety Report 5132867-6 (Version None)
Quarter: 2006Q4

REPORT INFORMATION
  Report Type: 
  Country: None (occurrence: None)
  Receive Date: 20061023
  Receipt Date: 20061017
  Transmission Date: 20070319
  Serious: Yes (Other)
  Sender: FDA-Public Use
  Company Number: JP-ALLERGAN-0606389US

PATIENT
  Sex: Male

DRUGS (3)
  1. ALESION SYRUP [Suspect]
     Indication: ECZEMA
     Route: 048
     Dates: start: 20051101, end: 20051101
  2. ALESION SYRUP [Suspect]
     Route: 048
     Dates: start: 20051105, end: 20051109
  3. LIDOMEX [Concomitant]
     Indication: ECZEMA
     Dosage: UNK, TID
     Dates: start: 20051101, end: 20051105

REACTIONS (3)
  - BLISTER [None]
  - LYMPHADENOPATHY [None]
  - NAIL AVULSION [None]
